FAERS Safety Report 18885452 (Version 1)
Quarter: 2021Q1

REPORT INFORMATION
  Report Type: Spontaneous
  Country: US (occurrence: US)
  Receive Date: 20210211
  Receipt Date: 20210211
  Transmission Date: 20210420
  Serious: Yes (Other)
  Sender: FDA-Public Use
  Company Number: None

PATIENT
  Age: 60 Year
  Sex: Female

DRUGS (19)
  1. OPSUMIT [Suspect]
     Active Substance: MACITENTAN
     Indication: PULMONARY HYPERTENSION
     Route: 048
     Dates: start: 20190228
  2. BUMETANIDE. [Concomitant]
     Active Substance: BUMETANIDE
  3. ATORVASTATIN [Concomitant]
     Active Substance: ATORVASTATIN
  4. ASPIRIN. [Concomitant]
     Active Substance: ASPIRIN
  5. SENNA LAXATIVE [Concomitant]
     Active Substance: SENNOSIDES
  6. GABAPENTIN. [Concomitant]
     Active Substance: GABAPENTIN
  7. SILDENAFIL. [Concomitant]
     Active Substance: SILDENAFIL
  8. LOSARTAN. [Concomitant]
     Active Substance: LOSARTAN
  9. OXYCODONE [Concomitant]
     Active Substance: OXYCODONE
  10. CHANTIX [Concomitant]
     Active Substance: VARENICLINE TARTRATE
  11. MELANTONIN [Concomitant]
  12. NALOXONE NASAL SPRAY [Concomitant]
  13. HUMULIN 70/30 KWIKPEN [Concomitant]
     Active Substance: INSULIN HUMAN
  14. COLACE [Concomitant]
     Active Substance: DOCUSATE SODIUM
  15. TRAMADOL. [Concomitant]
     Active Substance: TRAMADOL
  16. SPIRONOLACTONE. [Concomitant]
     Active Substance: SPIRONOLACTONE
  17. ALBUTEROL HFA [Concomitant]
     Active Substance: ALBUTEROL SULFATE
  18. CYCLOBENZAPRINE. [Concomitant]
     Active Substance: CYCLOBENZAPRINE
  19. TYVASO [Concomitant]
     Active Substance: TREPROSTINIL

REACTIONS (5)
  - Dyspnoea [None]
  - Abdominal distension [None]
  - SARS-CoV-2 test positive [None]
  - Chronic obstructive pulmonary disease [None]
  - Cough [None]

NARRATIVE: CASE EVENT DATE: 20210117
